FAERS Safety Report 8115535-8 (Version None)
Quarter: 2012Q1

REPORT INFORMATION
  Report Type: 
  Country: None (occurrence: None)
  Receive Date: 20120206
  Receipt Date: 20120124
  Transmission Date: 20120608
  Serious: Yes (Hospitalization)
  Sender: FDA-Public Use
  Company Number: CA-ELI_LILLY_AND_COMPANY-CA201201007501

PATIENT
  Age: 75 Year
  Sex: Female

DRUGS (6)
  1. SANDOZ AMLODIPINE [Concomitant]
  2. OVOL [Concomitant]
     Dosage: UNK, PRN
  3. TYLENOL-500 [Concomitant]
     Dosage: UNK, PRN
  4. TPN [Concomitant]
     Dosage: UNK
     Dates: start: 20080101
  5. TYLENOL W/ CODEINE NO. 2 [Concomitant]
     Dosage: UNK, PRN
  6. FORTEO [Suspect]
     Indication: OSTEOPOROSIS
     Dosage: 20 UG, QD
     Route: 058
     Dates: start: 20111011

REACTIONS (1)
  - INTESTINAL OBSTRUCTION [None]
